FAERS Safety Report 9132490 (Version 1)
Quarter: 2013Q1

REPORT INFORMATION
  Report Type: Report from Study
  Country: GR (occurrence: GR)
  Receive Date: 20130301
  Receipt Date: 20130301
  Transmission Date: 20140127
  Serious: Yes (Death, Life-Threatening, Hospitalization, Other)
  Sender: FDA-Public Use
  Company Number: GR-ABBOTT-12P-066-0940885-00

PATIENT
  Age: 82 Year
  Sex: Male
  Weight: 74 kg

DRUGS (12)
  1. HUMIRA [Suspect]
     Indication: CROHN^S DISEASE
     Dosage: BASELINE
     Route: 058
     Dates: start: 20080305, end: 20080305
  2. HUMIRA [Suspect]
     Dosage: WEEK 2
     Route: 058
  3. HUMIRA [Suspect]
     Route: 058
     Dates: start: 20090714, end: 20120512
  4. PIRACETAM [Concomitant]
     Indication: VERTIGO
     Dates: start: 20110901, end: 20120501
  5. FOLIC ACID [Concomitant]
     Indication: HYPERHOMOCYSTEINAEMIA
     Dates: start: 20111111, end: 20120501
  6. LEVOTHYROXINE SODIUM [Concomitant]
     Indication: HYPOTHYROIDISM
     Dates: start: 20060101, end: 20120501
  7. ATENOLOL [Concomitant]
     Indication: HYPERTENSION
     Dosage: 1/2 PILL
     Dates: start: 19890101, end: 20120501
  8. FINASTERIDE [Concomitant]
     Indication: BENIGN PROSTATIC HYPERPLASIA
     Dates: start: 20090101, end: 20120501
  9. TAMSOL [Concomitant]
     Indication: BENIGN PROSTATIC HYPERPLASIA
     Dates: start: 20030101, end: 20120501
  10. AMILOSTAD HYDROCHLORTHIAZIDE [Concomitant]
     Indication: HYPERTENSION
     Dosage: 5MG/50 MG, 1/2 PILL
     Dates: start: 19890101, end: 20120501
  11. MESALAMINE [Concomitant]
     Indication: CROHN^S DISEASE
     Dates: start: 20000101, end: 20120518
  12. AZATHIOPRINE [Concomitant]
     Indication: PRODUCT USED FOR UNKNOWN INDICATION

REACTIONS (2)
  - Lung cancer metastatic [Fatal]
  - Haemorrhagic stroke [Fatal]
